FAERS Safety Report 9752118 (Version 2)
Quarter: 2015Q3

REPORT INFORMATION
  Report Type: Report from Study
  Country: BR (occurrence: BR)
  Receive Date: 20131213
  Receipt Date: 20150925
  Transmission Date: 20151125
  Serious: Yes (Other)
  Sender: FDA-Public Use
  Company Number: PHHY2013BR145605

PATIENT
  Sex: Female

DRUGS (2)
  1. SANDOSTATIN LAR DEPOT [Suspect]
     Active Substance: OCTREOTIDE ACETATE
     Indication: GASTRIC CANCER
     Dosage: UNK UNK, QMO
     Route: 065
  2. OCUVITE [Concomitant]
     Active Substance: VITAMINS
     Indication: VISUAL IMPAIRMENT
     Dosage: UNK
     Route: 065

REACTIONS (9)
  - Labyrinthitis [Unknown]
  - Cataract [Unknown]
  - Memory impairment [Unknown]
  - Malaise [Unknown]
  - Heart rate irregular [Unknown]
  - Myopia [Unknown]
  - Malnutrition [Unknown]
  - Blindness [Unknown]
  - Cardiac disorder [Unknown]
